FAERS Safety Report 6993057-5 (Version None)
Quarter: 2010Q3

REPORT INFORMATION
  Report Type: 
  Country: None (occurrence: None)
  Receive Date: 20100917
  Receipt Date: 20100121
  Transmission Date: 20110219
  Serious: Yes (Hospitalization)
  Sender: FDA-Public Use
  Company Number: US-ASTRAZENECA-2010SE02919

PATIENT
  Age: 19 Year
  Sex: Male
  Weight: 69.4 kg

DRUGS (3)
  1. SEROQUEL [Suspect]
     Indication: SCHIZOPHRENIA
     Route: 048
     Dates: start: 20000101
  2. RISPERIDONE [Concomitant]
     Indication: SCHIZOPHRENIA
  3. METFORMIN [Concomitant]
     Indication: DIABETES MELLITUS
     Route: 048

REACTIONS (5)
  - DIABETES MELLITUS [None]
  - DRY MOUTH [None]
  - HALLUCINATION, AUDITORY [None]
  - PANCREATITIS [None]
  - TACHYPHRENIA [None]
